FAERS Safety Report 16243988 (Version 1)
Quarter: 2019Q2

REPORT INFORMATION
  Report Type: Spontaneous
  Country: FR (occurrence: FR)
  Receive Date: 20190426
  Receipt Date: 20190426
  Transmission Date: 20190711
  Serious: Yes (Hospitalization)
  Sender: FDA-Public Use
  Company Number: FR-MYLANLABS-2019M1037872

PATIENT
  Age: 76 Year
  Sex: Male
  Weight: 73 kg

DRUGS (12)
  1. DIFFU K [Suspect]
     Active Substance: POTASSIUM CHLORIDE
     Indication: HYPOKALAEMIA
     Dosage: 4 DOSAGE FORM, QD
     Route: 048
     Dates: end: 20180115
  2. TAHOR [Concomitant]
     Active Substance: ATORVASTATIN CALCIUM
  3. RAMIPRIL. [Suspect]
     Active Substance: RAMIPRIL
     Indication: MYOCARDIAL ISCHAEMIA
     Dosage: 2.5 MILLIGRAM, QD
     Route: 048
     Dates: end: 20180115
  4. PANTOPRAZOLE [Concomitant]
     Active Substance: PANTOPRAZOLE
  5. FUROSEMIDE. [Suspect]
     Active Substance: FUROSEMIDE
     Indication: MYOCARDIAL ISCHAEMIA
     Dosage: 80 MILLIGRAM, QD
     Route: 048
     Dates: end: 20180116
  6. IMOVANE [Concomitant]
     Active Substance: ZOPICLONE
  7. BRILIQUE [Concomitant]
     Active Substance: TICAGRELOR
  8. KARDEGIC [Concomitant]
     Active Substance: ASPIRIN DL-LYSINE
  9. QUESTRAN [Concomitant]
     Active Substance: CHOLESTYRAMINE
  10. NEO-MERCAZOLE [Concomitant]
     Active Substance: CARBIMAZOLE
  11. PREDNISONE. [Concomitant]
     Active Substance: PREDNISONE
  12. CORGARD [Concomitant]
     Active Substance: NADOLOL

REACTIONS (2)
  - Hyperkalaemia [Recovered/Resolved]
  - Acute kidney injury [Recovered/Resolved]

NARRATIVE: CASE EVENT DATE: 20180115
